FAERS Safety Report 9941966 (Version 1)
Quarter: 2014Q1

REPORT INFORMATION
  Report Type: Report from Study
  Country: US (occurrence: US)
  Receive Date: 20140303
  Receipt Date: 20140303
  Transmission Date: 20141002
  Serious: No
  Sender: FDA-Public Use
  Company Number: US-ABBVIE-13P-163-1043713-00

PATIENT
  Age: 69 Year
  Sex: Female
  Weight: 72.64 kg

DRUGS (5)
  1. HUMIRA [Suspect]
     Indication: MELKERSSON-ROSENTHAL SYNDROME
     Dates: start: 201212
  2. HUMIRA [Suspect]
     Indication: SKIN DISORDER
  3. METFORMIN [Concomitant]
     Indication: DIABETES MELLITUS
  4. VYTORIN [Concomitant]
     Indication: PRODUCT USED FOR UNKNOWN INDICATION
  5. UNKNOWN BLOOD PRESSURE [Concomitant]
     Indication: HYPERTENSION

REACTIONS (1)
  - Off label use [Not Recovered/Not Resolved]
